FAERS Safety Report 8089137-6 (Version None)
Quarter: 2012Q1

REPORT INFORMATION
  Report Type: 
  Country: None (occurrence: None)
  Receive Date: 20120128
  Receipt Date: 20110712
  Transmission Date: 20120608
  Serious: No
  Sender: FDA-Public Use
  Company Number: US-ABBOTT-11P-163-0838204-00

PATIENT
  Sex: Female

DRUGS (14)
  1. METHOTREXATE [Concomitant]
     Indication: PRODUCT USED FOR UNKNOWN INDICATION
  2. CLINAZEPAM [Concomitant]
     Indication: PRODUCT USED FOR UNKNOWN INDICATION
     Dosage: 2 IN AM, 1 HS
  3. PROPANOLOL ER [Concomitant]
     Indication: PRODUCT USED FOR UNKNOWN INDICATION
  4. WARFARIN SODIUM [Concomitant]
     Indication: PRODUCT USED FOR UNKNOWN INDICATION
  5. PRILOSEC [Concomitant]
     Indication: PRODUCT USED FOR UNKNOWN INDICATION
  6. CYCLOBENZAPRINE [Concomitant]
     Indication: PRODUCT USED FOR UNKNOWN INDICATION
     Dosage: 1/2-2 AT HS
  7. EVOXAC [Concomitant]
     Indication: PRODUCT USED FOR UNKNOWN INDICATION
  8. HUMIRA [Suspect]
     Indication: RHEUMATOID ARTHRITIS
     Dates: start: 20110601
  9. AMITRIPTYLINE HCL [Concomitant]
     Indication: PRODUCT USED FOR UNKNOWN INDICATION
     Dosage: 1/2-1 AT HS
  10. HYDOCODONE [Concomitant]
     Indication: PRODUCT USED FOR UNKNOWN INDICATION
  11. PAXIL [Concomitant]
     Indication: PRODUCT USED FOR UNKNOWN INDICATION
  12. HYDROXYCHOLRQUIN [Concomitant]
     Indication: PRODUCT USED FOR UNKNOWN INDICATION
  13. TRILIPIX [Concomitant]
     Indication: PRODUCT USED FOR UNKNOWN INDICATION
  14. IPRATROPIUM BROMIDE [Concomitant]
     Indication: PRODUCT USED FOR UNKNOWN INDICATION
     Dosage: NASAL SPRAY

REACTIONS (4)
  - DYSPNOEA [None]
  - COUGH [None]
  - FATIGUE [None]
  - JOINT SWELLING [None]
